FAERS Safety Report 4764711-0 (Version None)
Quarter: 2005Q3

REPORT INFORMATION
  Report Type: 
  Country: None (occurrence: None)
  Receive Date: 20050909
  Receipt Date: 20050324
  Transmission Date: 20060218
  Serious: Yes (Hospitalization, Disabling)
  Sender: FDA-Public Use
  Company Number: US-MERCK-0503USA04591

PATIENT
  Age: 66 Year
  Sex: Female
  Weight: 61 kg

DRUGS (11)
  1. VIOXX [Suspect]
     Indication: ARTHRITIS
     Route: 048
     Dates: start: 20000525, end: 20041001
  2. VIOXX [Suspect]
     Route: 048
     Dates: start: 20000525, end: 20041001
  3. VIOXX [Suspect]
     Route: 048
     Dates: start: 20000525, end: 20041001
  4. LUVOX [Concomitant]
     Indication: DEPRESSION
     Route: 065
     Dates: start: 19970101
  5. LUVOX [Concomitant]
     Indication: ANXIETY
     Route: 065
     Dates: start: 19970101
  6. RISPERDAL [Concomitant]
     Indication: OBSESSIVE-COMPULSIVE DISORDER
     Route: 065
     Dates: start: 19970101
  7. TYLENOL [Concomitant]
     Route: 065
  8. CEFTRIAXONE SODIUM [Concomitant]
     Route: 065
  9. TEGRETOL [Concomitant]
     Route: 065
  10. NEURONTIN [Concomitant]
     Indication: NEUROPATHY
     Route: 065
  11. FOSAMAX [Concomitant]
     Indication: OSTEOPOROSIS
     Route: 065

REACTIONS (25)
  - ANGINA PECTORIS [None]
  - ANHEDONIA [None]
  - ARTHRALGIA [None]
  - BACK INJURY [None]
  - BACK PAIN [None]
  - BALANCE DISORDER [None]
  - CARDIOVASCULAR DISORDER [None]
  - DEPRESSION [None]
  - DISCOMFORT [None]
  - DYSPEPSIA [None]
  - DYSPNOEA [None]
  - GASTROOESOPHAGEAL REFLUX DISEASE [None]
  - HEADACHE [None]
  - HYPERTENSION [None]
  - HYPOAESTHESIA [None]
  - LIFE EXPECTANCY SHORTENED [None]
  - MITRAL VALVE INCOMPETENCE [None]
  - MYOCARDIAL INFARCTION [None]
  - MYOCARDIAL ISCHAEMIA [None]
  - OSTEOARTHRITIS [None]
  - PAIN [None]
  - PARAESTHESIA [None]
  - TRICUSPID VALVE INCOMPETENCE [None]
  - TRIPLE VESSEL BYPASS GRAFT [None]
  - VENTRICULAR HYPOKINESIA [None]
